FAERS Safety Report 8914796 (Version 1)
Quarter: 2012Q4

REPORT INFORMATION
  Report Type: 
  Country: CN (occurrence: CN)
  Receive Date: 20121119
  Receipt Date: 20121119
  Transmission Date: 20130627
  Serious: Yes (Death)
  Sender: FDA-Public Use
  Company Number: PHHY2012CN104863

PATIENT
  Age: 73 Year
  Sex: Male

DRUGS (4)
  1. HEPARIN [Suspect]
     Dosage: 5000 U, UNK
  2. CLOPIDOGREL [Suspect]
     Dosage: 600 mg, UNK
  3. ACETYLSALICYLIC ACID [Suspect]
     Dosage: 300 mg, UNK
  4. TIROFIBAN [Suspect]

REACTIONS (5)
  - Pulmonary alveolar haemorrhage [Fatal]
  - Cough [Fatal]
  - Rhonchi [Fatal]
  - Haemoptysis [Fatal]
  - Dyspnoea [Fatal]
